FAERS Safety Report 8274431-6 (Version None)
Quarter: 2012Q2

REPORT INFORMATION
  Report Type: 
  Country: None (occurrence: None)
  Receive Date: 20120411
  Receipt Date: 20120330
  Transmission Date: 20120825
  Serious: Yes (Death, Hospitalization)
  Sender: FDA-Public Use
  Company Number: FR-ROCHE-1055567

PATIENT
  Age: 89 Year
  Sex: Female

DRUGS (8)
  1. CLONAZEPAM [Suspect]
     Indication: PRODUCT USED FOR UNKNOWN INDICATION
     Dates: start: 20111225
  2. FLUCONAZOLE [Concomitant]
  3. CAPTOPRIL [Concomitant]
  4. LANSOPRAZOLE [Concomitant]
  5. FOLIC ACID [Concomitant]
  6. CLAVULANATE POTASSIUM [Concomitant]
     Indication: LUNG DISORDER
  7. FORLAX (FRANCE) [Concomitant]
  8. AMOXICILLIN [Concomitant]
     Indication: LUNG DISORDER

REACTIONS (2)
  - DEPRESSED LEVEL OF CONSCIOUSNESS [None]
  - RESPIRATORY DISTRESS [None]
